FAERS Safety Report 5302708-2 (Version None)
Quarter: 2007Q2

REPORT INFORMATION
  Report Type: 
  Country: None (occurrence: None)
  Receive Date: 20070419
  Receipt Date: 20070410
  Transmission Date: 20071010
  Serious: Yes (Death, Hospitalization, Disabling, Other)
  Sender: FDA-Public Use
  Company Number: US-PFIZER INC-2007019671

PATIENT
  Sex: Male
  Weight: 81.6 kg

DRUGS (1)
  1. BEXTRA [Suspect]
     Indication: ARTHRITIS
     Dates: start: 20020517, end: 20050202

REACTIONS (3)
  - ACUTE MYOCARDIAL INFARCTION [None]
  - ARRHYTHMIA [None]
  - CARDIAC ARREST [None]
